FAERS Safety Report 8026801-9 (Version None)
Quarter: 2011Q4

REPORT INFORMATION
  Report Type: 
  Country: None (occurrence: None)
  Receive Date: 20111130
  Receipt Date: 20110615
  Transmission Date: 20120403
  Serious: Yes (Hospitalization, Other)
  Sender: FDA-Public Use
  Company Number: US201002003436

PATIENT
  Age: 53 Year
  Sex: Female
  Weight: 81.6 kg

DRUGS (13)
  1. NSAID'S [Concomitant]
  2. ACETAMINOPHEN [Concomitant]
  3. ASPIRIN [Concomitant]
  4. ALEVE [Concomitant]
  5. SYNTHROID [Concomitant]
  6. LOPID [Concomitant]
  7. METFORMIN HCL [Concomitant]
  8. PREMPRO [Concomitant]
  9. LOVAZA [Concomitant]
  10. BYETTA [Suspect]
     Dates: start: 20070709, end: 20071206
  11. BYETTA [Suspect]
     Dates: start: 20070101, end: 20071101
  12. BYETTA [Suspect]
     Dates: start: 20070201, end: 20070302
  13. EXENATIDE (EXENATIDE PEN, DISPOSABLE) [Concomitant]

REACTIONS (2)
  - PANCREATITIS ACUTE [None]
  - ANGIOMYOLIPOMA [None]
